FAERS Safety Report 8118384-X (Version None)
Quarter: 2012Q1

REPORT INFORMATION
  Report Type: 
  Country: None (occurrence: None)
  Receive Date: 20120207
  Receipt Date: 20120206
  Transmission Date: 20120608
  Serious: Yes (Other)
  Sender: FDA-Public Use
  Company Number: VE-PFIZER INC-2011052811

PATIENT
  Age: 35 Year
  Sex: Female

DRUGS (9)
  1. LYRICA [Suspect]
     Indication: NEURALGIA
     Dosage: 75 MG, 3X/DAY
     Route: 048
     Dates: start: 20100101, end: 20100101
  2. NEURONTIN [Concomitant]
     Indication: FIBROMYALGIA
     Dosage: 300 MG, 1X/DAY
     Route: 048
     Dates: start: 20100101
  3. POTASSIUM [Concomitant]
     Dosage: UNK
  4. VITAMIN E [Concomitant]
     Indication: PROPHYLAXIS
     Dosage: UNK
     Route: 048
  5. LOVAZA [Concomitant]
     Indication: PROPHYLAXIS
     Dosage: UNK
     Route: 048
  6. MARIJUANA [Concomitant]
     Dosage: UNK
  7. ALPRAZOLAM [Concomitant]
     Indication: NEURALGIA
     Dosage: 0.5 MG, 3X/DAY
     Route: 048
     Dates: start: 20100101
  8. ALPRAZOLAM [Concomitant]
     Dosage: 12 DF/DAY
     Route: 048
  9. 5-HYDROXYTRYPTOPHAN [Concomitant]
     Dosage: UNK

REACTIONS (26)
  - DEPRESSION [None]
  - MEMORY IMPAIRMENT [None]
  - PAIN IN EXTREMITY [None]
  - DYSPNOEA [None]
  - SKIN INFECTION [None]
  - ASTHENIA [None]
  - NEURALGIA [None]
  - MUSCLE SPASMS [None]
  - EYE IRRITATION [None]
  - PYREXIA [None]
  - TACHYCARDIA [None]
  - EUPHORIC MOOD [None]
  - ARTHRALGIA [None]
  - DISORIENTATION [None]
  - HEADACHE [None]
  - PAIN [None]
  - MULTIPLE SCLEROSIS [None]
  - PANIC ATTACK [None]
  - HYPERSENSITIVITY [None]
  - MYALGIA [None]
  - NECK PAIN [None]
  - PIGMENTATION DISORDER [None]
  - RHEUMATIC FEVER [None]
  - SCAB [None]
  - INSOMNIA [None]
  - HYPOTONIA [None]
